FAERS Safety Report 19707967 (Version 13)
Quarter: 2025Q3

REPORT INFORMATION
  Report Type: Report from Study
  Country: US (occurrence: US)
  Receive Date: 20210816
  Receipt Date: 20250723
  Transmission Date: 20251021
  Serious: Yes (Hospitalization, Other)
  Sender: TAKEDA
  Company Number: US-TAKEDA-US202025133

PATIENT
  Age: 45 Year
  Sex: Female
  Weight: 100 kg

DRUGS (40)
  1. HUMAN C1-ESTERASE INHIBITOR [Suspect]
     Active Substance: HUMAN C1-ESTERASE INHIBITOR
     Indication: Immune system disorder
  2. HUMAN C1-ESTERASE INHIBITOR [Suspect]
     Active Substance: HUMAN C1-ESTERASE INHIBITOR
  3. HUMAN C1-ESTERASE INHIBITOR [Suspect]
     Active Substance: HUMAN C1-ESTERASE INHIBITOR
     Dosage: 1500 INTERNATIONAL UNIT, Q72H
  4. HUMAN C1-ESTERASE INHIBITOR [Suspect]
     Active Substance: HUMAN C1-ESTERASE INHIBITOR
     Dosage: 2000 INTERNATIONAL UNIT, Q72H
  5. HUMAN C1-ESTERASE INHIBITOR [Suspect]
     Active Substance: HUMAN C1-ESTERASE INHIBITOR
     Dosage: 2500 INTERNATIONAL UNIT, Q72H
  6. EPINEPHRINE [Concomitant]
     Active Substance: EPINEPHRINE
  7. OMEPRAZOLE [Concomitant]
     Active Substance: OMEPRAZOLE
  8. ICATIBANT [Concomitant]
     Active Substance: ICATIBANT ACETATE
  9. SODIUM CHLORIDE [Concomitant]
     Active Substance: SODIUM CHLORIDE
  10. HEPARIN [Concomitant]
     Active Substance: HEPARIN SODIUM
  11. LEVOTHYROXINE SODIUM [Concomitant]
     Active Substance: LEVOTHYROXINE SODIUM
  12. ELIQUIS [Concomitant]
     Active Substance: APIXABAN
  13. VITAMIN D [Concomitant]
     Active Substance: VITAMIN D NOS
  14. SENNA S [Concomitant]
     Active Substance: DOCUSATE SODIUM\SENNOSIDES
  15. STERILE WATER [Concomitant]
     Active Substance: WATER
  16. ZOFRAN [Concomitant]
     Active Substance: ONDANSETRON HYDROCHLORIDE
  17. HAEGARDA [Concomitant]
     Active Substance: HUMAN C1-ESTERASE INHIBITOR
  18. CITALOPRAM [Concomitant]
     Active Substance: CITALOPRAM
  19. DIGOXIN [Concomitant]
     Active Substance: DIGOXIN
  20. VITAMIN D2 [Concomitant]
     Active Substance: ERGOCALCIFEROL
  21. ZYRTEC [Concomitant]
     Active Substance: CETIRIZINE HYDROCHLORIDE
  22. CLONIDINE HYDROCHLORIDE [Concomitant]
     Active Substance: CLONIDINE HYDROCHLORIDE
  23. DULOXETINE HYDROCHLORIDE [Concomitant]
     Active Substance: DULOXETINE HYDROCHLORIDE
  24. LEVOCETIRIZINE DIHYDROCHLORIDE [Concomitant]
     Active Substance: LEVOCETIRIZINE DIHYDROCHLORIDE
  25. VITAMIN C [Concomitant]
     Active Substance: ASCORBIC ACID
  26. KRILL OIL [Concomitant]
     Active Substance: DIETARY SUPPLEMENT\KRILL OIL
  27. FOLIC ACID [Concomitant]
     Active Substance: FOLIC ACID
  28. ALLOPURINOL [Concomitant]
     Active Substance: ALLOPURINOL
  29. ROSUVASTATIN CALCIUM [Concomitant]
     Active Substance: ROSUVASTATIN CALCIUM
  30. POTASSIUM CHLORIDE [Concomitant]
     Active Substance: POTASSIUM CHLORIDE
  31. SUMATRIPTAN SUCCINATE [Concomitant]
     Active Substance: SUMATRIPTAN SUCCINATE
  32. LINZESS [Concomitant]
     Active Substance: LINACLOTIDE
  33. METOPROLOL SUCCINATE [Concomitant]
     Active Substance: METOPROLOL SUCCINATE
  34. METHOTREXATE [Concomitant]
     Active Substance: METHOTREXATE
  35. PREGABALIN [Concomitant]
     Active Substance: PREGABALIN
  36. MONTELUKAST SODIUM [Concomitant]
     Active Substance: MONTELUKAST SODIUM
  37. OXYGEN [Concomitant]
     Active Substance: OXYGEN
  38. CELECOXIB [Concomitant]
     Active Substance: CELECOXIB
  39. AIMOVIG [Concomitant]
     Active Substance: ERENUMAB-AOOE
  40. TORSEMIDE [Concomitant]
     Active Substance: TORSEMIDE

REACTIONS (9)
  - Hiatus hernia [Unknown]
  - Vascular device infection [Unknown]
  - Haemorrhoids [Unknown]
  - Hereditary angioedema [Unknown]
  - Insurance issue [Unknown]
  - COVID-19 [Recovered/Resolved]
  - Product dose omission issue [Unknown]
  - Product use issue [Unknown]
  - Multiple allergies [Not Recovered/Not Resolved]

NARRATIVE: CASE EVENT DATE: 20210727
